FAERS Safety Report 5955241-9 (Version None)
Quarter: 2008Q4

REPORT INFORMATION
  Report Type: 
  Country: None (occurrence: None)
  Receive Date: 20081117
  Receipt Date: 20081107
  Transmission Date: 20090506
  Serious: No
  Sender: FDA-Public Use
  Company Number: US-B.I. PHARMACEUTICALS,INC./RIDGEFIELD-2008-BP-16898BP

PATIENT
  Sex: Male

DRUGS (2)
  1. MIRAPEX [Suspect]
     Indication: RESTLESS LEGS SYNDROME
     Dosage: .5MG
     Route: 048
     Dates: start: 20081030
  2. LOTREL [Concomitant]
     Indication: HYPERTENSION
     Route: 048

REACTIONS (3)
  - CHEST PAIN [None]
  - PALPITATIONS [None]
  - SOMNOLENCE [None]
